FAERS Safety Report 7549868-0 (Version None)
Quarter: 2011Q2

REPORT INFORMATION
  Report Type: 
  Country: None (occurrence: None)
  Receive Date: 20110615
  Receipt Date: 20110606
  Transmission Date: 20111010
  Serious: Yes (Hospitalization)
  Sender: FDA-Public Use
  Company Number: GB-ASTRAZENECA-2011SE34557

PATIENT
  Age: 88 Year
  Sex: Male

DRUGS (30)
  1. RANEXA [Suspect]
     Route: 048
  2. FINASTERIDE [Concomitant]
     Route: 048
  3. RANITIDINE [Concomitant]
     Route: 048
  4. SALMETEROL [Concomitant]
  5. CLOPIDOGREL [Concomitant]
     Route: 048
  6. NICORANDIL [Concomitant]
     Route: 048
  7. PREDNISOLONE [Concomitant]
     Route: 048
  8. SERETIDE [Concomitant]
  9. CAPASAL [Concomitant]
     Route: 061
  10. GLYCEROL 2.6% [Concomitant]
     Route: 054
  11. LEVOTHYROXINE SODIUM [Concomitant]
     Route: 048
  12. ACETAMINOPHEN AND CODEINE PHOSPHATE [Concomitant]
     Route: 048
  13. DILTIAZEM [Concomitant]
     Route: 048
  14. ISOSORBIDE MONONITRATE [Concomitant]
  15. SODIUM CHLORIDE [Concomitant]
     Route: 045
  16. MEROPENEM [Suspect]
     Indication: INFECTION
     Route: 042
  17. BECLOMETHASONE DIPROPIONATE [Concomitant]
     Dosage: 100 MCG TWO PUFFS TWO TIMES A DAY
  18. BETAMETHASONE [Concomitant]
     Route: 061
  19. DERMOL SOL [Concomitant]
     Route: 061
  20. SENNA-MINT WAF [Concomitant]
     Route: 048
  21. ASPIRIN [Concomitant]
  22. IPRATROPIUM BROMIDE [Concomitant]
     Route: 048
  23. OILATUM [Concomitant]
  24. ALBUTEROL [Concomitant]
  25. NITROGLYCERIN [Concomitant]
     Dosage: 1-2 PUFF AS REQUIRED
     Route: 060
  26. NITROGLYCERIN [Concomitant]
     Route: 062
  27. FUROSEMIDE [Concomitant]
     Route: 048
  28. GAVISCON [Concomitant]
     Route: 048
  29. LACTULOSE [Concomitant]
  30. LAXIDO [Concomitant]
     Route: 048

REACTIONS (1)
  - RENAL IMPAIRMENT [None]
